FAERS Safety Report 15391886 (Version 1)
Quarter: 2018Q3

REPORT INFORMATION
  Report Type: Spontaneous
  Country: US (occurrence: US)
  Receive Date: 20180910
  Receipt Date: 20180910
  Transmission Date: 20181010
  Serious: No
  Sender: FDA-Public Use
  Company Number: None

PATIENT
  Age: 32 Year
  Sex: Female

DRUGS (1)
  1. PROGESTERONE/SESAME MDV [Suspect]
     Active Substance: PROGESTERONE
     Indication: INFERTILITY
     Route: 030
     Dates: start: 20180802

REACTIONS (3)
  - Injection site rash [None]
  - Injection site urticaria [None]
  - Injection site pruritus [None]

NARRATIVE: CASE EVENT DATE: 20180902
